FAERS Safety Report 20925082 (Version 1)
Quarter: 2022Q2

REPORT INFORMATION
  Report Type: Spontaneous
  Country: US (occurrence: US)
  Receive Date: 20220607
  Receipt Date: 20220607
  Transmission Date: 20220720
  Serious: No
  Sender: FDA-Public Use
  Company Number: US-GE HEALTHCARE-2022CSU001668

PATIENT
  Age: 77 Year
  Sex: Male

DRUGS (6)
  1. CERETEC [Suspect]
     Active Substance: TECHNETIUM TC-99M EXAMETAZIME
     Indication: Perfusion brain scan
     Dosage: 747.4 MBQ, SINGLE
     Dates: start: 20220307, end: 20220307
  2. CERETEC [Suspect]
     Active Substance: TECHNETIUM TC-99M EXAMETAZIME
     Indication: Balance disorder
  3. CERETEC [Suspect]
     Active Substance: TECHNETIUM TC-99M EXAMETAZIME
     Indication: Amnesia
  4. ULTRA-TECHNEKOW [Concomitant]
     Active Substance: TECHNETIUM TC-99M
     Indication: Perfusion brain scan
     Dosage: UNK
     Dates: start: 20220307, end: 20220307
  5. ULTRA-TECHNEKOW [Concomitant]
     Active Substance: TECHNETIUM TC-99M
     Indication: Balance disorder
  6. ULTRA-TECHNEKOW [Concomitant]
     Active Substance: TECHNETIUM TC-99M
     Indication: Amnesia

REACTIONS (2)
  - Drug ineffective [Recovered/Resolved]
  - No adverse event [Recovered/Resolved]

NARRATIVE: CASE EVENT DATE: 20220307
